FAERS Safety Report 7542300-2 (Version None)
Quarter: 2011Q2

REPORT INFORMATION
  Report Type: 
  Country: None (occurrence: None)
  Receive Date: 20110524
  Receipt Date: 20110207
  Transmission Date: 20111010
  Serious: No
  Sender: FDA-Public Use
  Company Number: 026941

PATIENT
  Sex: Female
  Weight: 53.5244 kg

DRUGS (4)
  1. CIMZIA [Suspect]
     Indication: RHEUMATOID ARTHRITIS
     Dosage: (2 SYRINGES SUBCUTANEOUS)
     Route: 058
     Dates: start: 20101114
  2. PREDNISONE [Concomitant]
  3. SINGULAIR [Concomitant]
  4. MOBIC [Concomitant]

REACTIONS (4)
  - NASOPHARYNGITIS [None]
  - ALOPECIA [None]
  - SWELLING FACE [None]
  - SWELLING [None]
